FAERS Safety Report 16889602 (Version 1)
Quarter: 2019Q4

REPORT INFORMATION
  Report Type: Spontaneous
  Country: US (occurrence: US)
  Receive Date: 20191007
  Receipt Date: 20191007
  Transmission Date: 20200122
  Serious: No
  Sender: FDA-Public Use
  Company Number: US-JNJFOC-20191003577

PATIENT
  Age: 60 Year
  Sex: Female
  Weight: 85.81 kg

DRUGS (4)
  1. TYLENOL 8HR [Suspect]
     Active Substance: ACETAMINOPHEN
     Dosage: ONE CAPLET ON FRIDAY, TWO CAPLETS ON TUESDAY ONCE DAILY FOR THE TWO DAYS OF USE
     Route: 048
     Dates: start: 20191001
  2. CARDIZEM [Concomitant]
     Active Substance: DILTIAZEM HYDROCHLORIDE
     Indication: CARDIAC DISORDER
     Dosage: TAKEN DAILY
     Route: 065
  3. TYLENOL 8HR [Suspect]
     Active Substance: ACETAMINOPHEN
     Indication: ARTHRALGIA
     Dosage: ONE CAPLET ON FRIDAY, TWO CAPLETS ON TUESDAY ONCE DAILY FOR THE TWO DAYS OF USE
     Route: 048
     Dates: start: 20190927
  4. XARELTO [Concomitant]
     Active Substance: RIVAROXABAN
     Indication: ANTICOAGULANT THERAPY
     Dosage: TAKEN DAILY
     Route: 065

REACTIONS (3)
  - Inappropriate schedule of product administration [Unknown]
  - Incorrect dose administered [Unknown]
  - Somnolence [Recovered/Resolved]

NARRATIVE: CASE EVENT DATE: 20190927
